FAERS Safety Report 24656968 (Version 3)
Quarter: 2025Q1

REPORT INFORMATION
  Report Type: Spontaneous
  Country: CA (occurrence: CA)
  Receive Date: 20241125
  Receipt Date: 20250317
  Transmission Date: 20250408
  Serious: Yes (Hospitalization, Other)
  Sender: INTERCEPT PHARMACEUTICALS
  Company Number: CA-ADVANZ PHARMA-202411009586

PATIENT
  Sex: Female

DRUGS (2)
  1. OCALIVA [Suspect]
     Active Substance: OBETICHOLIC ACID
     Indication: Primary biliary cholangitis
     Route: 048
     Dates: start: 20200507
  2. URSODIOL [Concomitant]
     Active Substance: URSODIOL

REACTIONS (8)
  - Illness [Recovering/Resolving]
  - Fluid retention [Recovering/Resolving]
  - Infection [Recovering/Resolving]
  - Breast cancer [Unknown]
  - Portal hypertension [Unknown]
  - Ascites [Unknown]
  - Asthenia [Unknown]
  - Therapy cessation [Unknown]
